FAERS Safety Report 9863248 (Version 1)
Quarter: 2014Q1

REPORT INFORMATION
  Report Type: Spontaneous
  Country: US (occurrence: US)
  Receive Date: 20140203
  Receipt Date: 20140203
  Transmission Date: 20141002
  Serious: No
  Sender: FDA-Public Use
  Company Number: US-TARO-2013P1001526

PATIENT
  Age: 67 Year
  Sex: Female
  Weight: 77.11 kg

DRUGS (9)
  1. NYSTATIN + TRIAMCINOLONE ACETONIDE CREAM USP [Suspect]
     Route: 061
     Dates: start: 20121115, end: 20121121
  2. NYSTATIN + TRIAMCINOLONE ACETONIDE CREAM USP [Suspect]
     Route: 061
     Dates: start: 20121115, end: 20121121
  3. NYSTATIN + TRIAMCINOLONE ACETONIDE CREAM USP [Suspect]
     Route: 061
     Dates: start: 20130110, end: 20130117
  4. NYSTATIN + TRIAMCINOLONE ACETONIDE CREAM USP [Suspect]
     Route: 061
     Dates: start: 20130110, end: 20130117
  5. CALCIUM [Concomitant]
  6. FISH OIL [Concomitant]
  7. VITAMIN D [Concomitant]
  8. PROBIOTIC [Concomitant]
  9. LORAZEPAM [Concomitant]

REACTIONS (1)
  - Drug ineffective [Not Recovered/Not Resolved]
